FAERS Safety Report 5970575 (Version 18)
Quarter: 2013Q3

REPORT INFORMATION
  Report Type: Spontaneous
  Country: US (occurrence: US)
  Receive Date: 20060127
  Receipt Date: 20130819
  Transmission Date: 20140515
  Serious: Yes (Hospitalization, Other)
  Sender: FDA-Public Use
  Company Number: PHEH2006US01241

PATIENT
  Age: 51 Year
  Sex: Female
  Weight: 58.96 kg

DRUGS (33)
  1. AREDIA [Suspect]
     Indication: METASTASES TO BONE
     Dosage: 90 MG, QMO
     Route: 042
  2. ZOMETA [Suspect]
     Indication: METASTASES TO BONE
     Dosage: 4 MG, QMO
     Route: 042
     Dates: end: 20060208
  3. FEMARA [Concomitant]
     Dosage: 2.5 MG, QD
  4. LASIX [Concomitant]
     Dosage: 40 MG, QD
  5. PRINIVIL [Concomitant]
     Dosage: 20 MG, QD
  6. COUMADIN [Concomitant]
     Dosage: 1 MG, QD
  7. LORTAB [Concomitant]
  8. NAPROXEN [Concomitant]
     Dosage: 500 MG, BID
  9. OXYCONTIN [Concomitant]
     Dosage: 10 MG, PRN
  10. ASPIRIN [Concomitant]
  11. MULTIPLE VITAMINS [Concomitant]
  12. TAMOXIFEN [Concomitant]
     Indication: BREAST CANCER
     Dosage: 20 MG, QD
  13. METHOTREXATE [Concomitant]
  14. HYDROXYCHLOROQUINE [Concomitant]
  15. TAXOTERE [Concomitant]
  16. CENTRUM SILVER [Concomitant]
  17. PERCOCET [Concomitant]
  18. ZANTAC [Concomitant]
  19. LISINOPRIL [Concomitant]
  20. TEMAZEPAM [Concomitant]
  21. LOVENOX [Concomitant]
  22. PLAQUENIL [Concomitant]
  23. REGLAN                                  /USA/ [Concomitant]
  24. PROTONIX ^PHARMACIA^ [Concomitant]
  25. FERROUS SULFATE [Concomitant]
  26. BENADRYL ^PFIZER WARNER-LAMBERT^ [Concomitant]
  27. CALCIUM [Concomitant]
  28. VITAMIN D [Concomitant]
  29. MORPHINE SULFATE [Concomitant]
  30. ONDANSETRON HYDROCHLORIDE [Concomitant]
  31. PRILOSEC [Concomitant]
     Dosage: 40 MG, DAILY
     Route: 048
  32. METOCLOPRAMIDE [Concomitant]
     Dosage: 10 MG, DAILY
     Route: 048
  33. CEFAZOLIN SODIUM [Concomitant]

REACTIONS (82)
  - Osteonecrosis of jaw [Recovering/Resolving]
  - Tooth abscess [Unknown]
  - Periodontitis [Unknown]
  - Bone disorder [Unknown]
  - Primary sequestrum [Unknown]
  - Periodontal disease [Unknown]
  - Osteomyelitis [Unknown]
  - Oral pain [Unknown]
  - Sensitivity of teeth [Unknown]
  - Femur fracture [Unknown]
  - Rib fracture [Unknown]
  - Stress urinary incontinence [Unknown]
  - Electrocardiogram abnormal [Unknown]
  - Bundle branch block right [Unknown]
  - Myocardial infarction [Unknown]
  - Electrocardiogram ST segment depression [Unknown]
  - Arterial stenosis [Unknown]
  - Pyelonephritis [Unknown]
  - Fall [Unknown]
  - Osteoporosis [Unknown]
  - Erythema [Unknown]
  - Scar [Unknown]
  - Arthralgia [Unknown]
  - Constipation [Unknown]
  - Irritable bowel syndrome [Unknown]
  - Intervertebral disc degeneration [Unknown]
  - Perineurial cyst [Unknown]
  - Fracture [Unknown]
  - Breast necrosis [Unknown]
  - Hyperlipidaemia [Unknown]
  - Arteriosclerosis coronary artery [Unknown]
  - Rheumatoid arthritis [Unknown]
  - Joint stiffness [Unknown]
  - Joint swelling [Unknown]
  - Anaemia [Unknown]
  - Osteoarthritis [Unknown]
  - Urinary tract infection [Unknown]
  - Urinary retention [Unknown]
  - Ligament sprain [Unknown]
  - Peptic ulcer haemorrhage [Unknown]
  - Fatigue [Unknown]
  - Metastases to bone [Unknown]
  - Infected dermal cyst [Unknown]
  - Anaemia postoperative [Unknown]
  - Chondropathy [Unknown]
  - Diverticulum [Unknown]
  - Renal cyst [Unknown]
  - Hip fracture [Unknown]
  - Comminuted fracture [Unknown]
  - Mobility decreased [Unknown]
  - Hyponatraemia [Unknown]
  - Hypoglycaemia [Unknown]
  - Nausea [Unknown]
  - Vomiting [Unknown]
  - Myalgia [Unknown]
  - Cerumen impaction [Unknown]
  - Pneumothorax [Unknown]
  - Colon cancer metastatic [Unknown]
  - Second primary malignancy [Unknown]
  - Haemorrhoids [Unknown]
  - Vascular calcification [Unknown]
  - Duodenal ulcer [Unknown]
  - Gastritis [Unknown]
  - Dyskinesia [Unknown]
  - Epistaxis [Unknown]
  - Bone density decreased [Unknown]
  - Abdominal pain [Unknown]
  - Insomnia [Unknown]
  - Pulmonary fibrosis [Unknown]
  - Bullous lung disease [Unknown]
  - Lung disorder [Unknown]
  - Musculoskeletal chest pain [Unknown]
  - Fibrosis [Unknown]
  - Osteosclerosis [Unknown]
  - Pleural fibrosis [Unknown]
  - Joint effusion [Unknown]
  - Haemarthrosis [Unknown]
  - Sinusitis [Unknown]
  - Oedema mucosal [Unknown]
  - Gastrointestinal haemorrhage [Unknown]
  - Gastrooesophageal reflux disease [Unknown]
  - Back pain [Unknown]
